FAERS Safety Report 8960367 (Version 1)
Quarter: 2012Q4

REPORT INFORMATION
  Report Type: 
  Country: CA (occurrence: CA)
  Receive Date: 20121211
  Receipt Date: 20121211
  Transmission Date: 20130627
  Serious: Yes (Death)
  Sender: FDA-Public Use
  Company Number: CA-BAXTER-2012BAX025132

PATIENT
  Age: 8 Month
  Sex: Female
  Weight: 3.5 kg

DRUGS (2)
  1. PLASMA-LYTE A [Suspect]
     Indication: SURGERY
     Route: 042
     Dates: start: 20121122, end: 20121122
  2. PLASMA-LYTE A [Suspect]
     Indication: OFF LABEL USE

REACTIONS (3)
  - Death [Fatal]
  - Off label use [None]
  - Infusion related reaction [None]
